FAERS Safety Report 23366013 (Version 2)
Quarter: 2024Q1

REPORT INFORMATION
  Report Type: Spontaneous
  Country: GB (occurrence: GB)
  Receive Date: 20240104
  Receipt Date: 20240108
  Transmission Date: 20240410
  Serious: Yes (Hospitalization, Other)
  Sender: FDA-Public Use
  Company Number: GB-PFIZER INC-PV202300207939

PATIENT
  Age: 62 Year
  Sex: Male

DRUGS (10)
  1. KETAMINE HYDROCHLORIDE [Suspect]
     Active Substance: KETAMINE HYDROCHLORIDE
     Indication: Neuralgia
     Dosage: 10 MG, 4X/DAY (DAY 1)
     Route: 048
  2. KETAMINE HYDROCHLORIDE [Suspect]
     Active Substance: KETAMINE HYDROCHLORIDE
     Indication: Abdominal pain
     Dosage: 100 MG, 4X/DAY (DAY 8)
     Route: 048
  3. KETAMINE HYDROCHLORIDE [Suspect]
     Active Substance: KETAMINE HYDROCHLORIDE
     Dosage: 150 MG, 4X/DAY (DAY 11)
     Route: 048
  4. MAGNESIUM [Suspect]
     Active Substance: MAGNESIUM
     Indication: Blood magnesium decreased
     Dosage: 8 MMOL
     Route: 042
  5. MORPHINE [Concomitant]
     Active Substance: MORPHINE
     Indication: Abdominal pain
     Dosage: 1 TO 2 EXTRA DOSES PER 24 HOURS
     Route: 058
  6. CALCIUM [Concomitant]
     Active Substance: CALCIUM
     Indication: Adjusted calcium decreased
     Dosage: 1500 MG, DAILY
     Route: 048
  7. VIT D [VITAMIN D NOS] [Concomitant]
     Indication: Adjusted calcium decreased
     Dosage: 400 IU
     Route: 048
  8. FENTANYL [Concomitant]
     Active Substance: FENTANYL\FENTANYL CITRATE
     Indication: Abdominal pain
     Dosage: 100 UG/HOUR
     Route: 062
  9. FENTANYL [Concomitant]
     Active Substance: FENTANYL\FENTANYL CITRATE
     Dosage: 75 UG/HOUR
     Route: 062
  10. FENTANYL [Concomitant]
     Active Substance: FENTANYL\FENTANYL CITRATE
     Dosage: UNK
     Route: 060

REACTIONS (2)
  - Toxicity to various agents [Recovered/Resolved]
  - Off label use [Unknown]
